FAERS Safety Report 14687433 (Version 1)
Quarter: 2018Q1

REPORT INFORMATION
  Report Type: Spontaneous
  Country: IL (occurrence: IL)
  Receive Date: 20180328
  Receipt Date: 20180328
  Transmission Date: 20180509
  Serious: Yes (Hospitalization)
  Sender: FDA-Public Use
  Company Number: IL-RICON PHARMA, LLC-RIC201803-000225

PATIENT
  Age: 27 Year
  Sex: Female

DRUGS (5)
  1. BETAMETHASONE. [Suspect]
     Active Substance: BETAMETHASONE
     Dosage: TWO INJECTIONS
     Route: 030
  2. AUGMENTIN [Concomitant]
     Active Substance: AMOXICILLIN\CLAVULANATE POTASSIUM
     Indication: PROPHYLAXIS
  3. PRESSOLAT [Concomitant]
  4. PROGESTERONE. [Concomitant]
     Active Substance: PROGESTERONE
  5. AUGMENTIN [Concomitant]
     Active Substance: AMOXICILLIN\CLAVULANATE POTASSIUM
     Indication: MASTITIS

REACTIONS (3)
  - Galactorrhoea [Recovered/Resolved]
  - Exposure during pregnancy [Unknown]
  - Breast engorgement [Recovered/Resolved]
